FAERS Safety Report 8872086 (Version 3)
Quarter: 2012Q4

REPORT INFORMATION
  Report Type: 
  Country: CA (occurrence: CA)
  Receive Date: 20121030
  Receipt Date: 20121213
  Transmission Date: 20130627
  Serious: Yes (Death, Hospitalization)
  Sender: FDA-Public Use
  Company Number: CA-BAXTER-2012BAX020781

PATIENT
  Age: 72 Year
  Sex: Female

DRUGS (1)
  1. DIANEAL PD4 SOLUTION WITH 1.5% DEXTROSE AND 2.5 MEQ/L CALCIUM [Suspect]
     Indication: PERITONEAL DIALYSIS
     Route: 033

REACTIONS (5)
  - Death [Fatal]
  - Myocardial infarction [Recovered/Resolved]
  - Gastrointestinal haemorrhage [Unknown]
  - Lung disorder [Unknown]
  - Clostridium difficile infection [Recovered/Resolved]
